FAERS Safety Report 8124349-4 (Version None)
Quarter: 2012Q1

REPORT INFORMATION
  Report Type: 
  Country: None (occurrence: None)
  Receive Date: 20120209
  Receipt Date: 20120131
  Transmission Date: 20120608
  Serious: Yes (Other)
  Sender: FDA-Public Use
  Company Number: NO-ELI_LILLY_AND_COMPANY-NO201201009306

PATIENT
  Sex: Male

DRUGS (11)
  1. ZYPREXA [Suspect]
     Indication: RESTLESSNESS
     Dosage: 5 MG, QD
     Route: 048
     Dates: start: 20111017
  2. MIDAZOLAM [Concomitant]
  3. NOREPINEPHRINE BITARTRATE [Concomitant]
  4. CORDARONE [Concomitant]
  5. CATAPRESAN                         /00171101/ [Concomitant]
  6. FRAGMIN [Concomitant]
  7. WARFARIN SODIUM [Concomitant]
  8. FENTANYL CITRATE [Concomitant]
  9. ZYPREXA [Suspect]
     Dosage: 15 MG, QD
     Route: 048
     Dates: end: 20111020
  10. PIPERACILLIN AND TAZOBACTAM [Concomitant]
  11. PARACET                            /00020001/ [Concomitant]

REACTIONS (2)
  - RHABDOMYOLYSIS [None]
  - RENAL FAILURE ACUTE [None]
